FAERS Safety Report 4479253-X (Version None)
Quarter: 2004Q4

REPORT INFORMATION
  Report Type: 
  Country: None (occurrence: None)
  Receive Date: 20041019
  Receipt Date: 20041019
  Transmission Date: 20050328
  Serious: Yes (Hospitalization)
  Sender: FDA-Public Use
  Company Number: None

PATIENT
  Age: 72 Year
  Sex: Female
  Weight: 82.1011 kg

DRUGS (10)
  1. DIGOXIN [Suspect]
     Indication: ATRIAL FLUTTER
     Dosage: 0.125MG  DAILY  ORAL
     Route: 048
  2. DIGOXIN [Suspect]
     Indication: CARDIAC FAILURE CONGESTIVE
     Dosage: 0.125MG  DAILY  ORAL
     Route: 048
  3. WARFARIN SODIUM [Concomitant]
  4. AMIODARONE HCL [Concomitant]
  5. ISOSORBIDE MONONITRATE [Concomitant]
  6. RANITIDINE [Concomitant]
  7. KCL TAB [Concomitant]
  8. METOPROLOL [Concomitant]
  9. NORVASC [Concomitant]
  10. HYDRALAZINE HCL [Concomitant]

REACTIONS (3)
  - BLOOD PRESSURE DIASTOLIC INCREASED [None]
  - COLD SWEAT [None]
  - THERAPEUTIC AGENT TOXICITY [None]
